FAERS Safety Report 20656896 (Version 1)
Quarter: 2022Q1

REPORT INFORMATION
  Report Type: Spontaneous
  Country: CA (occurrence: CA)
  Receive Date: 20220331
  Receipt Date: 20220331
  Transmission Date: 20220423
  Serious: Yes (Life-Threatening, Other)
  Sender: FDA-Public Use
  Company Number: CA-TEVA-2022-CA-2021666

PATIENT
  Age: 17 Year
  Sex: Male
  Weight: 63 kg

DRUGS (23)
  1. ETOPOSIDE [Suspect]
     Active Substance: ETOPOSIDE
     Indication: Acute myeloid leukaemia
     Route: 041
  2. CYTARABINE [Suspect]
     Active Substance: CYTARABINE
     Indication: Acute myeloid leukaemia
     Route: 041
  3. ALTEPLASE [Concomitant]
     Active Substance: ALTEPLASE
  4. AMITRIPTYLINE [Concomitant]
     Active Substance: AMITRIPTYLINE
  5. CAFFEINE [Concomitant]
     Active Substance: CAFFEINE
  6. CEFTAZIDIME [Concomitant]
     Active Substance: CEFTAZIDIME
  7. DEXAMETHASONE [Concomitant]
     Active Substance: DEXAMETHASONE
  8. DIMENHYDRINATE [Concomitant]
     Active Substance: DIMENHYDRINATE
  9. DIPHENHYDRAMINE [Concomitant]
     Active Substance: DIPHENHYDRAMINE
  10. EMEND [Concomitant]
     Active Substance: APREPITANT
  11. GRANISETRON [Concomitant]
     Active Substance: GRANISETRON
  12. HYDROCORTISONE [Concomitant]
     Active Substance: HYDROCORTISONE
  13. HYDROMORPHONE [Concomitant]
     Active Substance: HYDROMORPHONE
  14. LEVOFLOXACIN [Concomitant]
     Active Substance: LEVOFLOXACIN
  15. LORAZEPAM [Concomitant]
     Active Substance: LORAZEPAM
     Route: 065
  16. MAGNESIUM [Concomitant]
     Active Substance: MAGNESIUM
  17. NABILONE [Concomitant]
     Active Substance: NABILONE
  18. NALOXONE [Concomitant]
     Active Substance: NALOXONE
  19. OLANZAPINE [Concomitant]
     Active Substance: OLANZAPINE
  20. ONDANSETRON [Concomitant]
     Active Substance: ONDANSETRON
  21. PANTOPRAZOLE [Concomitant]
     Active Substance: PANTOPRAZOLE
  22. RIZATRIPTAN [Concomitant]
     Active Substance: RIZATRIPTAN
  23. SENNOSIDES [Concomitant]
     Active Substance: SENNOSIDES

REACTIONS (6)
  - Angioedema [Recovered/Resolved]
  - Aplastic anaemia [Recovered/Resolved]
  - Hypersensitivity [Recovered/Resolved]
  - Oedema mouth [Recovered/Resolved]
  - Oral pain [Recovered/Resolved]
  - Stomatitis [Recovered/Resolved]
